FAERS Safety Report 9217023 (Version 5)
Quarter: 2014Q1

REPORT INFORMATION
  Report Type: Spontaneous
  Country: GB (occurrence: None)
  Receive Date: 20130404
  Receipt Date: 20140224
  Transmission Date: 20141002
  Serious: Yes (Hospitalization)
  Sender: FDA-Public Use
  Company Number: SYM-2013-02363

PATIENT
  Age: 72 Year
  Sex: Female

DRUGS (4)
  1. 5-FU [Suspect]
     Indication: COLORECTAL CANCER METASTATIC
     Dosage: ?
     Route: 040
     Dates: start: 20130306, end: 20130306
  2. IRINOTECAN [Suspect]
     Indication: COLORECTAL CANCER METASTATIC
     Route: 042
     Dates: start: 20130306, end: 20130306
  3. LEUCOVORIN [Suspect]
     Indication: COLORECTAL CANCER METASTATIC
     Route: 042
     Dates: start: 20130306, end: 20130306
  4. AFLIBERCEPT [Suspect]
     Indication: COLORECTAL CANCER METASTATIC
     Dosage: EVERY CYCLE, INTRAVENOUS (NOT OTHERWISE SPECIFIED)
     Route: 042
     Dates: start: 20130306, end: 20130306

REACTIONS (7)
  - Malaise [None]
  - Lethargy [None]
  - Hypophagia [None]
  - Mucosal inflammation [None]
  - Immobile [None]
  - Dehydration [None]
  - Lactic acidosis [None]
